FAERS Safety Report 8598738-8 (Version None)
Quarter: 2012Q3

REPORT INFORMATION
  Report Type: 
  Country: None (occurrence: None)
  Receive Date: 20120816
  Receipt Date: 19950816
  Transmission Date: 20120928
  Serious: Yes (Other)
  Sender: FDA-Public Use
  Company Number: US-ROCHE-1100874

PATIENT
  Sex: Male

DRUGS (14)
  1. ACTIVASE [Suspect]
     Route: 042
  2. NITROGLYCERIN [Concomitant]
     Route: 041
  3. LOPRESSOR [Concomitant]
     Dosage: TWICE IN 15 MINUTES
  4. ACTIVASE [Suspect]
     Route: 042
  5. HEPARIN [Concomitant]
     Dosage: 1000 UNITS
     Route: 041
  6. NITROGLYCERIN [Concomitant]
     Route: 041
  7. NITROGLYCERIN [Concomitant]
     Route: 041
  8. LOPRESSOR [Concomitant]
  9. NITROGLYCERIN [Concomitant]
     Route: 060
  10. NITROGLYCERIN [Concomitant]
     Route: 041
  11. ACTIVASE [Suspect]
     Indication: ACUTE MYOCARDIAL INFARCTION
     Route: 040
     Dates: start: 19950207
  12. INSULIN [Concomitant]
     Dosage: 12 UNITS
  13. HEPARIN [Concomitant]
     Dosage: 10000 UNITS
     Route: 040
  14. NITROGLYCERIN [Concomitant]
     Route: 041

REACTIONS (2)
  - CHEST PAIN [None]
  - SINUS BRADYCARDIA [None]
